FAERS Safety Report 11520217 (Version 1)
Quarter: 2015Q3

REPORT INFORMATION
  Report Type: Spontaneous
  Country: US (occurrence: US)
  Receive Date: 20150918
  Receipt Date: 20150918
  Transmission Date: 20151125
  Serious: No
  Sender: FDA-Public Use
  Company Number: US-RB-074051-15

PATIENT

DRUGS (1)
  1. MUCINEX MAXIMUM STRENGTH [Suspect]
     Active Substance: GUAIFENESIN
     Indication: PROPHYLAXIS
     Dosage: 1200MG. ONE TABLET EVERY 12 HOURS. TOOK LAST DOSE ON 08-JAN-2015 AT 12:00AM.,BID
     Route: 065

REACTIONS (3)
  - No adverse event [Unknown]
  - Incorrect drug administration duration [Unknown]
  - Product use issue [Unknown]
